FAERS Safety Report 20561061 (Version 2)
Quarter: 2022Q1

REPORT INFORMATION
  Report Type: Spontaneous
  Country: AU (occurrence: AU)
  Receive Date: 20220307
  Receipt Date: 20220315
  Transmission Date: 20220423
  Serious: Yes (Other)
  Sender: FDA-Public Use
  Company Number: AU-PFIZER INC-2018063892

PATIENT
  Age: 74 Year
  Sex: Male

DRUGS (26)
  1. APOMORPHINE HYDROCHLORIDE [Suspect]
     Active Substance: APOMORPHINE HYDROCHLORIDE
     Indication: Parkinson^s disease
     Dosage: 1.5MG/ HR
     Route: 058
     Dates: start: 20180213
  2. APOMORPHINE HYDROCHLORIDE [Suspect]
     Active Substance: APOMORPHINE HYDROCHLORIDE
     Dosage: 3.5 MG, AS NEEDED
     Route: 058
  3. APOMORPHINE HYDROCHLORIDE [Suspect]
     Active Substance: APOMORPHINE HYDROCHLORIDE
     Indication: Parkinson^s disease
     Dosage: UNK, DAILY  (100MG/20MLS, F1-0.36, DAILY SC INFUSION)
     Route: 058
  4. APOMORPHINE HYDROCHLORIDE [Suspect]
     Active Substance: APOMORPHINE HYDROCHLORIDE
     Dosage: 0.36MLS/HR WAKING DAY
     Route: 058
  5. RABEPRAZOLE SODIUM [Suspect]
     Active Substance: RABEPRAZOLE SODIUM
     Dosage: 20 MG, 2X/DAY
  6. ATORVASTATIN CALCIUM [Suspect]
     Active Substance: ATORVASTATIN CALCIUM
     Dosage: 80 MG, NOCTE
  7. PREGABALIN [Suspect]
     Active Substance: PREGABALIN
     Dosage: 75MG NOCTE (1700HRS) 150MG NOCTE
  8. BENSERAZIDE HYDROCHLORIDE\LEVODOPA [Suspect]
     Active Substance: BENSERAZIDE HYDROCHLORIDE\LEVODOPA
     Dosage: UNK (AT NIGHJT)
  9. SINEMET [Suspect]
     Active Substance: CARBIDOPA\LEVODOPA
     Indication: Parkinson^s disease
     Dosage: 1 DF, NOCTE
  10. DOMPERIDONE [Suspect]
     Active Substance: DOMPERIDONE
     Dosage: 10 MG, MANE BD
  11. FUROSEMIDE [Suspect]
     Active Substance: FUROSEMIDE
     Dosage: 20 MG, MANE
  12. CALCIUM\VITAMIN D [Suspect]
     Active Substance: CALCIUM\VITAMIN D
     Dosage: MANE
  13. SOLIFENACIN [Suspect]
     Active Substance: SOLIFENACIN
     Dosage: 5 MG MANE
  14. DUTASTERIDE\TAMSULOSIN HYDROCHLORIDE [Suspect]
     Active Substance: DUTASTERIDE\TAMSULOSIN HYDROCHLORIDE
     Dosage: 500/400MCG DAILY
  15. RIVAROXABAN [Suspect]
     Active Substance: RIVAROXABAN
     Dosage: 20 MG, NOCTE
  16. METFORMIN [Suspect]
     Active Substance: METFORMIN HYDROCHLORIDE
     Dosage: 1000 MG, NOCTE
  17. NORTRIPTYLINE [Suspect]
     Active Substance: NORTRIPTYLINE
     Dosage: 10 MG, NOCTE
  18. AMITRIPTYLINE [Suspect]
     Active Substance: AMITRIPTYLINE
     Dosage: 10-25MG NOCTE PRN
  19. BISACODYL [Suspect]
     Active Substance: BISACODYL
     Dosage: 5 MG, NOCTE
  20. PEG-3350 AND ELECTROLYTES [Suspect]
     Active Substance: POLYETHYLENE GLYCOL 3350\POTASSIUM CHLORIDE\SODIUM BICARBONATE\SODIUM CHLORIDE\SODIUM SULFATE
     Dosage: UNK, WEEKLY
  21. INTRAGAM P [Suspect]
     Active Substance: HUMAN IMMUNOGLOBULIN G
     Dosage: 1 GRAM /KILOGRAM FORTNIGHTLY
  22. STALEVO [Concomitant]
     Active Substance: CARBIDOPA\ENTACAPONE\LEVODOPA
     Indication: Parkinson^s disease
     Dosage: UNK, 4X/DAY (150 FOURTH HOURLY QID FROM 5.00AM)
  23. PRAMIPEXOLE [Concomitant]
     Active Substance: PRAMIPEXOLE
     Indication: Parkinson^s disease
     Dosage: 0.75 MG, MANE
  24. AMANTADINE [Concomitant]
     Active Substance: AMANTADINE
     Indication: Parkinson^s disease
     Dosage: 100 MG, 2X/DAY
  25. AZILECT [Concomitant]
     Active Substance: RASAGILINE MESYLATE
     Indication: Parkinson^s disease
     Dosage: 1 MG, MANE
  26. FLORINEF ACETATE [Concomitant]
     Active Substance: FLUDROCORTISONE ACETATE
     Indication: Parkinson^s disease
     Dosage: 50 UG, MANE

REACTIONS (53)
  - Cerebellar stroke [Not Recovered/Not Resolved]
  - Brain stem stroke [Unknown]
  - Chronic inflammatory demyelinating polyradiculoneuropathy [Not Recovered/Not Resolved]
  - Hallucination, visual [Unknown]
  - Myocardial ischaemia [Not Recovered/Not Resolved]
  - Atrial fibrillation [Not Recovered/Not Resolved]
  - Cerebral hypoperfusion [Unknown]
  - Neuropathy peripheral [Unknown]
  - Ataxia [Unknown]
  - Somnolence [Recovering/Resolving]
  - Fatigue [Unknown]
  - Lethargy [Unknown]
  - Photopsia [Unknown]
  - Hyporesponsive to stimuli [Unknown]
  - Eye pain [Unknown]
  - Headache [Unknown]
  - Gait disturbance [Unknown]
  - Vertigo [Unknown]
  - Dysarthria [Unknown]
  - Aphasia [Unknown]
  - Disturbance in attention [Unknown]
  - Neuralgia [Not Recovered/Not Resolved]
  - Hypoaesthesia [Unknown]
  - Salivary hypersecretion [Unknown]
  - Bradykinesia [Unknown]
  - Nasal mucosal disorder [Unknown]
  - On and off phenomenon [Not Recovered/Not Resolved]
  - Sinusitis [Unknown]
  - Vestibular disorder [Unknown]
  - Freezing phenomenon [Unknown]
  - Micturition urgency [Not Recovered/Not Resolved]
  - Urine flow decreased [Unknown]
  - Oliguria [Unknown]
  - Constipation [Unknown]
  - Memory impairment [Unknown]
  - Insomnia [Unknown]
  - Tremor [Unknown]
  - Rapid eye movement sleep behaviour disorder [Unknown]
  - Sensory disturbance [Unknown]
  - Post micturition dribble [Unknown]
  - Nocturia [Not Recovered/Not Resolved]
  - Anxiety [Unknown]
  - Depression [Unknown]
  - White blood cell count abnormal [Recovered/Resolved]
  - Binocular eye movement disorder [Unknown]
  - Hypotension [Unknown]
  - Temperature intolerance [Unknown]
  - Balance disorder [Unknown]
  - Speech disorder [Unknown]
  - Abdominal distension [Unknown]
  - Dysphonia [Unknown]
  - Diplopia [Unknown]
  - Dizziness [Unknown]

NARRATIVE: CASE EVENT DATE: 20180213
